FAERS Safety Report 4509200-3 (Version None)
Quarter: 2004Q4

REPORT INFORMATION
  Report Type: 
  Country: None (occurrence: None)
  Receive Date: 20041123
  Receipt Date: 20041116
  Transmission Date: 20050328
  Serious: Yes (Hospitalization, Disabling)
  Sender: FDA-Public Use
  Company Number: US-MERCK-0411USA02776

PATIENT
  Age: 57 Year
  Sex: Male

DRUGS (1)
  1. INDOCIN [Suspect]
     Indication: ARTHRITIS
     Route: 048
     Dates: start: 20041001

REACTIONS (3)
  - DIZZINESS [None]
  - FLUSHING [None]
  - HEART RATE IRREGULAR [None]
